FAERS Safety Report 10208573 (Version 2)
Quarter: 2014Q2

REPORT INFORMATION
  Report Type: Spontaneous
  Country: JP (occurrence: JP)
  Receive Date: 20140530
  Receipt Date: 20140612
  Transmission Date: 20141212
  Serious: Yes (Hospitalization)
  Sender: FDA-Public Use
  Company Number: JP-B.I. PHARMACEUTICALS,INC./RIDGEFIELD-2014-BI-23045BP

PATIENT
  Age: 68 Year
  Sex: Female
  Weight: 46.4 kg

DRUGS (7)
  1. MOBIC [Suspect]
     Indication: RHEUMATOID ARTHRITIS
     Dosage: 10 MG
     Route: 048
     Dates: start: 20070702
  2. STUDY DRUG [Suspect]
     Indication: RHEUMATOID ARTHRITIS
     Dosage: 10 MG
     Route: 048
     Dates: start: 20080927, end: 20130919
  3. METOLATE [Suspect]
     Indication: RHEUMATOID ARTHRITIS
     Dosage: 1.1429 MG
     Route: 048
     Dates: start: 20070731
  4. FOLAMIN [Suspect]
     Indication: RHEUMATOID ARTHRITIS
     Dosage: 0.7143 MG
     Route: 048
     Dates: start: 20070705
  5. TAKEPRON [Suspect]
     Indication: GASTRITIS PROPHYLAXIS
     Dosage: 15 MG
     Route: 048
     Dates: start: 20070702
  6. FERROMIA [Suspect]
     Indication: ANAEMIA PROPHYLAXIS
     Dosage: 50 MG
     Route: 048
     Dates: start: 20091119
  7. MOHRUS [Concomitant]
     Route: 065
     Dates: start: 20090924

REACTIONS (1)
  - Cervical spinal stenosis [Not Recovered/Not Resolved]
